FAERS Safety Report 21493490 (Version 2)
Quarter: 2022Q4

REPORT INFORMATION
  Report Type: Spontaneous
  Country: US (occurrence: US)
  Receive Date: 20221021
  Receipt Date: 20221027
  Transmission Date: 20230112
  Serious: No
  Sender: FDA-Public Use
  Company Number: US-BRISTOL-MYERS SQUIBB COMPANY-2022-124574

PATIENT
  Age: 64 Year
  Sex: Female

DRUGS (2)
  1. ORENCIA [Suspect]
     Active Substance: ABATACEPT
     Indication: Rheumatoid arthritis
     Dosage: DOSE : 125 MG;     FREQ : ONCE PER WEEK
     Route: 058
  2. ORENCIA [Suspect]
     Active Substance: ABATACEPT
     Dosage: DOSE : 125 MG;     FREQ : ONCE PER WEEK
     Route: 058
     Dates: start: 201712

REACTIONS (2)
  - Product dose omission issue [Unknown]
  - Device defective [Unknown]
